FAERS Safety Report 4526361-0 (Version None)
Quarter: 2004Q4

REPORT INFORMATION
  Report Type: 
  Country: None (occurrence: None)
  Receive Date: 20041210
  Receipt Date: 20041130
  Transmission Date: 20050328
  Serious: Yes (Hospitalization)
  Sender: FDA-Public Use
  Company Number: CIP04002282

PATIENT
  Age: 82 Year
  Sex: Female

DRUGS (5)
  1. RISEDRONATE SODIUM [Suspect]
     Indication: OSTEOPOROSIS
     Dosage: 2.5 MG DAILY, ORAL
     Route: 048
     Dates: start: 20040514, end: 20041018
  2. PLETAL [Suspect]
     Dosage: 150 MG DAILY, ORAL
     Route: 048
     Dates: start: 20040611, end: 20041018
  3. BLOPRESS (CANDESARTAN CILEXETIL) [Concomitant]
  4. SELBEX (TEPRENONE) [Concomitant]
  5. ALFAROL (ALFACALCIDOL) [Concomitant]

REACTIONS (9)
  - COLLAGEN DISORDER [None]
  - DISSEMINATED TUBERCULOSIS [None]
  - HAEMATOCRIT DECREASED [None]
  - HEPATOCELLULAR DAMAGE [None]
  - INFECTION [None]
  - PNEUMONIA BACTERIAL [None]
  - PNEUMONIA PRIMARY ATYPICAL [None]
  - RESPIRATORY MONILIASIS [None]
  - WHITE BLOOD CELL COUNT DECREASED [None]
